FAERS Safety Report 16069759 (Version 1)
Quarter: 2019Q1

REPORT INFORMATION
  Report Type: Spontaneous
  Country: PL (occurrence: PL)
  Receive Date: 20190314
  Receipt Date: 20190314
  Transmission Date: 20190418
  Serious: Yes (Death, Hospitalization)
  Sender: FDA-Public Use
  Company Number: PL-ROCHE-2275858

PATIENT
  Age: 31 Year
  Sex: Male

DRUGS (8)
  1. BORTEZOMIB. [Suspect]
     Active Substance: BORTEZOMIB
     Indication: LIVER TRANSPLANT
     Dosage: 1.25 MG/M2, DAILY (4 X 2 MG)
     Route: 065
  2. ANTITHYMOCYTE IMMUNOGLOBULIN [Suspect]
     Active Substance: THYMOCYTE IMMUNE GLOBULIN NOS
     Indication: LIVER TRANSPLANT
     Dosage: 1 G/KG OF BODY MASS IN 4 INFUSIONS
     Route: 065
  3. MESALAZINE [Concomitant]
     Active Substance: MESALAMINE
     Indication: COLITIS ULCERATIVE
     Route: 065
  4. ANTITHYMOCYTE IMMUNOGLOBULIN [Suspect]
     Active Substance: THYMOCYTE IMMUNE GLOBULIN NOS
     Dosage: 800 MG, TOTAL
     Route: 065
  5. METHYLPREDNISOLONE. [Suspect]
     Active Substance: METHYLPREDNISOLONE
     Indication: LIVER TRANSPLANT
     Dosage: 120 MG, DAILY
     Route: 065
  6. PREDNISONE. [Suspect]
     Active Substance: PREDNISONE
     Indication: LIVER TRANSPLANT
     Dosage: 30 MG, DAILY
     Route: 065
  7. TACROLIMUS. [Suspect]
     Active Substance: TACROLIMUS
     Indication: LIVER TRANSPLANT
     Dosage: UNK
     Route: 065
  8. MYCOPHENOLATE MOFETIL. [Suspect]
     Active Substance: MYCOPHENOLATE MOFETIL
     Indication: LIVER TRANSPLANT
     Dosage: UNK
     Route: 065

REACTIONS (6)
  - Respiratory distress [Fatal]
  - Pneumocystis jirovecii infection [Fatal]
  - Superinfection bacterial [Unknown]
  - Cytomegalovirus infection [Fatal]
  - Neutropenia [Unknown]
  - Pulmonary fibrosis [Unknown]
